FAERS Safety Report 6442697-0 (Version None)
Quarter: 2009Q4

REPORT INFORMATION
  Report Type: 
  Country: None (occurrence: None)
  Receive Date: 20091117
  Receipt Date: 20091110
  Transmission Date: 20100525
  Serious: Yes (Death)
  Sender: FDA-Public Use
  Company Number: CA-CELGENEUS-028-21880-09092325

PATIENT
  Sex: Female

DRUGS (2)
  1. REVLIMID [Suspect]
     Route: 048
     Dates: start: 20090203, end: 20090101
  2. REVLIMID [Suspect]
     Dosage: VARIABLE DOSES
     Route: 048
     Dates: start: 20090720, end: 20090810

REACTIONS (1)
  - MALIGNANT NEOPLASM PROGRESSION [None]
